FAERS Safety Report 8275622-0 (Version None)
Quarter: 2012Q2

REPORT INFORMATION
  Report Type: 
  Country: None (occurrence: None)
  Receive Date: 20120412
  Receipt Date: 20120402
  Transmission Date: 20120825
  Serious: No
  Sender: FDA-Public Use
  Company Number: US-BIOGENIDEC-2010BI042712

PATIENT
  Age: 61 Year
  Sex: Female

DRUGS (2)
  1. TYSABRI [Suspect]
     Indication: MULTIPLE SCLEROSIS
     Route: 042
     Dates: start: 20070612
  2. BENADRYL [Concomitant]
     Indication: PREMEDICATION

REACTIONS (8)
  - SNEEZING [None]
  - EMOTIONAL DISTRESS [None]
  - EXOSTOSIS [None]
  - CHONDROPATHY [None]
  - ARTHRALGIA [None]
  - FATIGUE [None]
  - MOBILITY DECREASED [None]
  - MENTAL DISORDER [None]
